FAERS Safety Report 7946897-X (Version None)
Quarter: 2011Q4

REPORT INFORMATION
  Report Type: 
  Country: None (occurrence: None)
  Receive Date: 20111129
  Receipt Date: 20111115
  Transmission Date: 20120403
  Serious: Yes (Disabling)
  Sender: FDA-Public Use
  Company Number: GB-WATSON-2011-19714

PATIENT
  Age: 40 Year
  Sex: Female

DRUGS (2)
  1. INHALERS [Concomitant]
     Indication: ASTHMA
     Dosage: UNK
  2. CABERGOLINE [Suspect]
     Indication: PRODUCT USED FOR UNKNOWN INDICATION
     Dosage: 0.25 MG, 1TOTAL
     Route: 048

REACTIONS (2)
  - ASTHMA [None]
  - BRONCHOSPASM [None]
